FAERS Safety Report 25098667 (Version 2)
Quarter: 2025Q2

REPORT INFORMATION
  Report Type: Report from Study
  Country: PK (occurrence: PK)
  Receive Date: 20250320
  Receipt Date: 20250401
  Transmission Date: 20250717
  Serious: Yes (Death)
  Sender: ROCHE
  Company Number: PK-ROCHE-10000175908

PATIENT
  Age: 80 Year
  Sex: Male

DRUGS (1)
  1. RITUXIMAB [Suspect]
     Active Substance: RITUXIMAB
     Indication: Diffuse large B-cell lymphoma
     Route: 042
     Dates: start: 20240906, end: 20250115

REACTIONS (5)
  - Hypersensitivity [Unknown]
  - Rash [Unknown]
  - Dyspnoea [Unknown]
  - Hypotension [Unknown]
  - Asthenia [Fatal]

NARRATIVE: CASE EVENT DATE: 20250109
